FAERS Safety Report 8174708-9 (Version None)
Quarter: 2012Q1

REPORT INFORMATION
  Report Type: 
  Country: None (occurrence: None)
  Receive Date: 20120229
  Receipt Date: 20120224
  Transmission Date: 20120608
  Serious: Yes (Hospitalization)
  Sender: FDA-Public Use
  Company Number: US-GLAXOSMITHKLINE-A0967906A

PATIENT
  Age: 76 Year
  Sex: Male
  Weight: 90 kg

DRUGS (12)
  1. OXYGEN [Concomitant]
  2. PLAVIX [Concomitant]
  3. NEXIUM [Concomitant]
  4. METOPROLOL SUCCINATE [Concomitant]
  5. REVATIO [Concomitant]
  6. WARFARIN SODIUM [Concomitant]
  7. ACETAMINOPHEN [Concomitant]
  8. FUROSEMIDE [Concomitant]
  9. TAMSULOSIN HCL [Concomitant]
  10. PREDNISONE TAB [Concomitant]
  11. FLOLAN [Suspect]
     Indication: ESSENTIAL HYPERTENSION
     Dates: start: 20111026
  12. ASPIRIN [Concomitant]

REACTIONS (1)
  - DYSPNOEA [None]
